FAERS Safety Report 10687625 (Version 1)
Quarter: 2014Q4

REPORT INFORMATION
  Report Type: Spontaneous
  Country: US (occurrence: None)
  Receive Date: 20141231
  Receipt Date: 20141231
  Transmission Date: 20150529
  Serious: Yes (Hospitalization)
  Sender: FDA-Public Use
  Company Number: None

PATIENT
  Age: 76 Year
  Sex: Male
  Weight: 90.8 kg

DRUGS (1)
  1. ASPIRIN. [Suspect]
     Active Substance: ASPIRIN
     Route: 048
     Dates: start: 20121025, end: 20141101

REACTIONS (5)
  - Gastrointestinal haemorrhage [None]
  - Gastric haemorrhage [None]
  - Iron deficiency anaemia [None]
  - Gastrointestinal arteriovenous malformation [None]
  - Haemoglobin decreased [None]

NARRATIVE: CASE EVENT DATE: 20141101
